FAERS Safety Report 9482015 (Version 2)
Quarter: 2013Q3

REPORT INFORMATION
  Report Type: Report from Study
  Country: US (occurrence: US)
  Receive Date: 20130828
  Receipt Date: 20130828
  Transmission Date: 20140515
  Serious: Yes (Hospitalization)
  Sender: FDA-Public Use
  Company Number: US-BAYER-2013-056510

PATIENT
  Age: 67 Year
  Sex: Female
  Weight: 82.09 kg

DRUGS (10)
  1. NEXAVAR [Suspect]
     Indication: HEPATIC CANCER
     Dosage: 400 MG, BID
     Route: 048
  2. NEXAVAR [Suspect]
     Indication: HEPATIC CANCER
     Dosage: 200 MG, BID
     Route: 048
     Dates: start: 20130814
  3. LISINOPRIL [Concomitant]
     Dosage: UNK
     Route: 048
  4. ATIVAN [Concomitant]
     Dosage: UNK
     Route: 048
  5. PANTOPRAZOLE [Concomitant]
     Dosage: UNK
     Route: 048
  6. ATENOLOL [Concomitant]
     Dosage: UNK
     Route: 048
  7. LEVOTHYROXIN [Concomitant]
     Dosage: UNK
     Route: 048
  8. OXYCODONE [Concomitant]
     Dosage: UNK
     Route: 048
  9. STOOL SOFTENER [Concomitant]
     Dosage: UNK
     Route: 048
  10. FENTANYL [Concomitant]
     Dosage: UNK

REACTIONS (7)
  - Pancreatitis [None]
  - Hypertension [Not Recovered/Not Resolved]
  - Rash [None]
  - Dry skin [None]
  - Headache [None]
  - Visual impairment [None]
  - Pruritus [None]
